FAERS Safety Report 4471984-0 (Version None)
Quarter: 2004Q4

REPORT INFORMATION
  Report Type: 
  Country: None (occurrence: None)
  Receive Date: 20041007
  Receipt Date: 20040924
  Transmission Date: 20050328
  Serious: Yes (Hospitalization, Other)
  Sender: FDA-Public Use
  Company Number: 2004072614

PATIENT
  Age: 67 Year
  Sex: Male
  Weight: 70 kg

DRUGS (4)
  1. NORVASC [Suspect]
     Indication: HYPERTENSION
     Dosage: 5 MG (5 MG, 1 IN 1 D), ORAL
     Route: 048
     Dates: start: 20020101, end: 20040515
  2. ASPIRIN [Suspect]
     Indication: PROPHYLAXIS
     Dosage: 100 MG (100 MG, 1 IN  1 D), ORAL
     Route: 048
     Dates: start: 20020101, end: 20040515
  3. BISOPROLOL FUMARATE [Concomitant]
  4. LISINOPRIL DIHYDRATE (LISINOPRIL DIHYDRATE) [Concomitant]

REACTIONS (7)
  - DRUG INTERACTION [None]
  - DUODENAL ULCER [None]
  - EROSIVE DUODENITIS [None]
  - GASTROINTESTINAL MUCOSAL DISORDER [None]
  - HELICOBACTER INFECTION [None]
  - PAIN IN EXTREMITY [None]
  - ULCER HAEMORRHAGE [None]
